FAERS Safety Report 5265864-0 (Version None)
Quarter: 2007Q1

REPORT INFORMATION
  Report Type: 
  Country: None (occurrence: None)
  Receive Date: 20070312
  Receipt Date: 20070312
  Transmission Date: 20070707
  Serious: Yes (Life-Threatening, Hospitalization)
  Sender: FDA-Public Use
  Company Number: None

PATIENT
  Age: 65 Year
  Sex: Male
  Weight: 98.8842 kg

DRUGS (1)
  1. TREPROSTINIL [Suspect]
     Indication: PULMONARY HYPERTENSION
     Dosage: 8 NG/KG/MIN  IV DRIP
     Route: 041
     Dates: start: 20061020, end: 20061029

REACTIONS (4)
  - CATHETER RELATED INFECTION [None]
  - ENTEROBACTER INFECTION [None]
  - SEPSIS [None]
  - SYNCOPE [None]
